FAERS Safety Report 14502371 (Version 2)
Quarter: 2019Q1

REPORT INFORMATION
  Report Type: Spontaneous
  Country: US (occurrence: US)
  Receive Date: 20180208
  Receipt Date: 20190211
  Transmission Date: 20190417
  Serious: No
  Sender: FDA-Public Use
  Company Number: US-AUROBINDO-AUR-APL-2017-36567

PATIENT
  Sex: Male

DRUGS (4)
  1. AMOXICILLIN+CLAVULANIC ACID ORAL SUSPENSION [Suspect]
     Active Substance: AMOXICILLIN\CLAVULANIC ACID
     Indication: SINUSITIS
     Dosage: UNK
     Route: 048
     Dates: start: 20170616
  2. AMOXICILLIN+CLAVULANIC ACID ORAL SUSPENSION [Suspect]
     Active Substance: AMOXICILLIN\CLAVULANIC ACID
     Dosage: UNK
     Route: 048
     Dates: start: 20170616
  3. AMOXICILLIN+CLAVULANIC ACID ORAL SUSPENSION [Suspect]
     Active Substance: AMOXICILLIN\CLAVULANIC ACID
     Dosage: UNK
     Route: 048
     Dates: start: 20170616
  4. AMOXICILLIN+CLAVULANIC ACID ORAL SUSPENSION [Suspect]
     Active Substance: AMOXICILLIN\CLAVULANIC ACID
     Dosage: UNK
     Route: 048
     Dates: start: 20170616

REACTIONS (4)
  - Product contamination [Not Recovered/Not Resolved]
  - Product colour issue [Not Recovered/Not Resolved]
  - Product storage error [Not Recovered/Not Resolved]
  - Drug ineffective [Not Recovered/Not Resolved]

NARRATIVE: CASE EVENT DATE: 20170616
